FAERS Safety Report 9630976 (Version 1)
Quarter: 2013Q4

REPORT INFORMATION
  Report Type: Spontaneous
  Country: NL (occurrence: None)
  Receive Date: 20131011
  Receipt Date: 20131011
  Transmission Date: 20140711
  Serious: Yes (Other)
  Sender: FDA-Public Use
  Company Number: AUR-APL-2013-08337

PATIENT
  Age: 68 Year
  Sex: Male
  Weight: 96 kg

DRUGS (4)
  1. IRBESARTAN (IRBESARTAN) [Suspect]
     Indication: ATRIAL FIBRILLATION
     Dosage: 300 MG, 1 IN 1 D), UNKNOWN
     Dates: start: 20120101
  2. ATORVASTATIN CALCIUM (ATORVASTATIN CALCIUM) [Suspect]
     Indication: BLOOD CHOLESTEROL INCREASED
     Dosage: 40 MG, 1 IN 1 D, UNKNOWN
     Dates: start: 2012
  3. METOPROLOL SUCCINATE (METOPROLOL SUCCINATE) [Suspect]
     Indication: ATRIAL FIBRILLATION
     Dosage: 100 MG, 1 IN 1 D, UNKNOWN
     Dates: start: 2012
  4. ESOMEPRAZOLE [Concomitant]

REACTIONS (4)
  - Balance disorder [None]
  - Therapeutic response unexpected with drug substitution [None]
  - Mood swings [None]
  - Palpitations [None]
